FAERS Safety Report 7861300-6 (Version None)
Quarter: 2011Q4

REPORT INFORMATION
  Report Type: 
  Country: None (occurrence: None)
  Receive Date: 20111026
  Receipt Date: 20111012
  Transmission Date: 20120403
  Serious: Yes (Disabling)
  Sender: FDA-Public Use
  Company Number: FK201102233

PATIENT
  Age: 23 Year
  Sex: Female
  Weight: 67.5 kg

DRUGS (11)
  1. CEPHALEXIN [Concomitant]
  2. GAVISCON ADVANCE (GAVISCON ADVANCE) [Concomitant]
  3. ERYTHROMYCIN ETHYLSUCCINATE [Concomitant]
  4. CLOMIPRAMINE HCL [Concomitant]
  5. METOCLOPRAMIDE (METOCLOPRAMIDE) (METOCLOPRAMIDE) [Concomitant]
  6. PROCHLORPERAZINE MALEATE [Concomitant]
  7. CYCLIZINE (CYCLIZINE) [Concomitant]
  8. LORAZEPAM [Concomitant]
  9. ONDANSETRON [Suspect]
     Indication: PRODUCT USED FOR UNKNOWN INDICATION
  10. CHLORDIAZEPOXIDE [Concomitant]
  11. CLOMIPRAMINE HCL [Concomitant]

REACTIONS (1)
  - MORBID THOUGHTS [None]
